FAERS Safety Report 8257173 (Version 2)
Quarter: 2013Q1

REPORT INFORMATION
  Report Type: Report from Study
  Country: DE (occurrence: DE)
  Receive Date: 20111121
  Receipt Date: 20130125
  Transmission Date: 20140127
  Serious: Yes (Hospitalization)
  Sender: FDA-Public Use
  Company Number: DE-PFIZER INC-2011278109

PATIENT
  Age: 78 Year
  Sex: Female
  Weight: 68 kg

DRUGS (4)
  1. IRINOTECAN HCL [Suspect]
     Indication: COLORECTAL CANCER METASTATIC
     Dosage: 300 MG, EVERY 15 DAYS
     Route: 042
     Dates: start: 20090910, end: 20091009
  2. FLUOROURACIL [Suspect]
     Indication: COLORECTAL CANCER METASTATIC
     Dosage: 800 MG/M2, EVERY 15 DAYS
     Route: 040
     Dates: start: 20090910, end: 20091009
  3. FLUOROURACIL [Suspect]
     Dosage: 700 MG, EVERY 15 DAYS
     Route: 042
     Dates: start: 20090910, end: 20091009
  4. BEVACIZUMAB [Suspect]
     Indication: COLORECTAL CANCER METASTATIC
     Dosage: 340 MG, EVERY 15 DAYS
     Route: 042
     Dates: start: 20090910, end: 20091010

REACTIONS (1)
  - Gastrointestinal infection [Recovered/Resolved]
